FAERS Safety Report 4606069-3 (Version None)
Quarter: 2005Q1

REPORT INFORMATION
  Report Type: 
  Country: None (occurrence: None)
  Receive Date: 20050311
  Receipt Date: 20050225
  Transmission Date: 20050727
  Serious: Yes (Death)
  Sender: FDA-Public Use
  Company Number: GB-BOEHRINGER INGELHEIM PHARMMACEUTICALS, INC.-2005-UK-00329UK

PATIENT
  Sex: Male

DRUGS (4)
  1. ATROVENT [Suspect]
     Route: 055
  2. ALBUTEROL [Concomitant]
     Route: 055
  3. PERINDOPRIL [Concomitant]
     Dosage: 2 MG ONCE DAILY
  4. SYMBICORT [Concomitant]
     Dosage: 400/12 MCG

REACTIONS (1)
  - CHRONIC OBSTRUCTIVE PULMONARY DISEASE [None]
